FAERS Safety Report 25751337 (Version 1)
Quarter: 2025Q3

REPORT INFORMATION
  Report Type: Spontaneous
  Country: JP (occurrence: JP)
  Receive Date: 20250902
  Receipt Date: 20250902
  Transmission Date: 20251021
  Serious: Yes (Death, Other)
  Sender: MERCK SHARP & DOHME LLC
  Company Number: JP-MSD-2401JPN001162J

PATIENT
  Age: 63 Year
  Sex: Male

DRUGS (3)
  1. KEYTRUDA [Suspect]
     Active Substance: PEMBROLIZUMAB
     Indication: Tongue cancer recurrent
     Route: 041
     Dates: start: 202012, end: 2021
  2. FLUOROURACIL [Suspect]
     Active Substance: FLUOROURACIL
     Indication: Tongue cancer recurrent
     Route: 065
     Dates: start: 202012
  3. CISPLATIN [Suspect]
     Active Substance: CISPLATIN
     Indication: Tongue cancer recurrent
     Route: 065
     Dates: start: 202012

REACTIONS (3)
  - Death [Fatal]
  - Malignant neoplasm progression [Unknown]
  - Therapeutic response decreased [Unknown]

NARRATIVE: CASE EVENT DATE: 20210101
